FAERS Safety Report 21812142 (Version 4)
Quarter: 2023Q2

REPORT INFORMATION
  Report Type: Report from Study
  Country: GB (occurrence: GB)
  Receive Date: 20230103
  Receipt Date: 20230524
  Transmission Date: 20230721
  Serious: Yes (Hospitalization)
  Sender: FDA-Public Use
  Company Number: GB-PFIZER INC-PV202200130249

PATIENT
  Age: 2 Year
  Sex: Female

DRUGS (5)
  1. CRIZOTINIB [Suspect]
     Active Substance: CRIZOTINIB
     Dosage: 87.5 MG
     Dates: start: 20221108, end: 20221221
  2. SODIUM PHOSPHATE, MONOBASIC, ANHYDROUS [Suspect]
     Active Substance: SODIUM PHOSPHATE, MONOBASIC, ANHYDROUS
     Indication: Hypophosphataemia
     Dosage: 16 MMOL, 3X/DAY
     Route: 048
     Dates: start: 20221205, end: 20221222
  3. TEMSIROLIMUS [Suspect]
     Active Substance: TEMSIROLIMUS
     Dosage: 23 MG
     Dates: start: 20221108, end: 20221212
  4. COTRIMOXAZOLE [Concomitant]
     Active Substance: SULFAMETHOXAZOLE\TRIMETHOPRIM
     Indication: Prophylaxis
     Dosage: 240 MG
     Route: 048
     Dates: start: 20210517, end: 20221220
  5. ONDANSETRON [Concomitant]
     Active Substance: ONDANSETRON
     Indication: Nausea
     Dosage: 2 MG
     Route: 048
     Dates: start: 20210517

REACTIONS (1)
  - Gastroenteritis [Recovered/Resolved]

NARRATIVE: CASE EVENT DATE: 20221220
